FAERS Safety Report 5779983-3 (Version None)
Quarter: 2008Q2

REPORT INFORMATION
  Report Type: 
  Country: None (occurrence: None)
  Receive Date: 20080616
  Receipt Date: 20080220
  Transmission Date: 20081010
  Serious: Yes (Other)
  Sender: FDA-Public Use
  Company Number: 08-108

PATIENT
  Age: 79 Year
  Sex: Female

DRUGS (4)
  1. ALEVE [Suspect]
     Indication: HEADACHE
     Dosage: 220 MG, DAILY, ORAL
     Route: 048
     Dates: start: 20080210
  2. CHOLESTEROL PILL [Concomitant]
  3. WALGREENS ASPIRIN [Concomitant]
  4. WALGREENS CALCIUM [Concomitant]

REACTIONS (1)
  - HYPERSENSITIVITY [None]
